FAERS Safety Report 4431588-2 (Version None)
Quarter: 2004Q3

REPORT INFORMATION
  Report Type: 
  Country: None (occurrence: None)
  Receive Date: 20040726
  Receipt Date: 20040325
  Transmission Date: 20050211
  Serious: No
  Sender: FDA-Public Use
  Company Number: US_0403101191

PATIENT
  Age: 79 Year
  Sex: Female
  Weight: 51 kg

DRUGS (5)
  1. FORTEO [Suspect]
     Indication: OSTEOPOROSIS
     Dates: start: 20040122
  2. EVISTA [Concomitant]
  3. CALCIUM [Concomitant]
  4. ADVAIR DISKUS 100/50 [Concomitant]
  5. DIOVAN [Concomitant]

REACTIONS (5)
  - ARTHRALGIA [None]
  - ASTHENIA [None]
  - MUSCLE CRAMP [None]
  - PAIN IN EXTREMITY [None]
  - SOMNOLENCE [None]
